FAERS Safety Report 13350000 (Version 1)
Quarter: 2017Q1

REPORT INFORMATION
  Report Type: Spontaneous
  Country: US (occurrence: US)
  Receive Date: 20170320
  Receipt Date: 20170320
  Transmission Date: 20170429
  Serious: Yes (Other)
  Sender: FDA-Public Use
  Company Number: US-PFIZER INC-2017107741

PATIENT
  Age: 60 Year
  Sex: Female

DRUGS (1)
  1. EMBEDA [Suspect]
     Active Substance: MORPHINE SULFATE\NALTREXONE HYDROCHLORIDE
     Dosage: 100 MG, 1X/DAY

REACTIONS (6)
  - Incoherent [Unknown]
  - Confusional state [Unknown]
  - Extra dose administered [Unknown]
  - Unresponsive to stimuli [Unknown]
  - Somnolence [Unknown]
  - Suicidal ideation [Unknown]

NARRATIVE: CASE EVENT DATE: 20170309
